FAERS Safety Report 7047590-0 (Version None)
Quarter: 2010Q4

REPORT INFORMATION
  Report Type: 
  Country: None (occurrence: None)
  Receive Date: 20101015
  Receipt Date: 20101013
  Transmission Date: 20110411
  Serious: Yes (Life-Threatening, Hospitalization)
  Sender: FDA-Public Use
  Company Number: FR-BRISTOL-MYERS SQUIBB COMPANY-15038920

PATIENT
  Age: 73 Year
  Sex: Female

DRUGS (10)
  1. MEGACE [Suspect]
     Indication: BREAST CANCER
     Route: 048
     Dates: start: 20080407, end: 20091223
  2. AVASTIN [Suspect]
     Indication: BREAST CANCER
     Route: 042
     Dates: start: 20071211
  3. FUROSEMIDE [Concomitant]
     Route: 048
  4. LOXEN [Concomitant]
     Dosage: LOXEN SR CAPS
  5. PLAVIX [Concomitant]
     Route: 048
  6. DOMPERIDONE [Concomitant]
     Route: 048
  7. QUINAPRIL HCL [Concomitant]
     Route: 048
  8. OMEPRAZOLE [Concomitant]
     Route: 048
  9. ARTOTEC [Concomitant]
     Dosage: 1DF= 20/0.2MG TABLET DISCONTINUED DURING HOSPITALIZATION
     Route: 048
  10. BONIVA [Concomitant]
     Dosage: 1DF= 1 TABLET.
     Route: 048

REACTIONS (3)
  - GENERAL PHYSICAL HEALTH DETERIORATION [None]
  - ISCHAEMIC STROKE [None]
  - MUSCULAR WEAKNESS [None]
